FAERS Safety Report 8196888-1 (Version None)
Quarter: 2012Q1

REPORT INFORMATION
  Report Type: 
  Country: None (occurrence: None)
  Receive Date: 20120307
  Receipt Date: 20120301
  Transmission Date: 20120608
  Serious: Yes (Hospitalization)
  Sender: FDA-Public Use
  Company Number: DSA_55147_2012

PATIENT
  Sex: Male
  Weight: 59.4212 kg

DRUGS (7)
  1. XENAZINE [Suspect]
     Indication: HUNTINGTON'S DISEASE
     Dosage: (12.5 MG QD ORAL)
     Route: 048
     Dates: start: 20120124
  2. RISPERDAL [Concomitant]
  3. LISINOPRIL [Concomitant]
  4. GLYBURIDE [Concomitant]
  5. ACTOS [Concomitant]
  6. ZOCOR [Concomitant]
  7. ALLERGY /00000402/ (NOT SPECIFIED) [Suspect]
     Indication: MULTIPLE ALLERGIES
     Dosage: (AS NEEDED)

REACTIONS (4)
  - SOMNOLENCE [None]
  - ALTERED STATE OF CONSCIOUSNESS [None]
  - FALL [None]
  - BLOOD GLUCOSE DECREASED [None]
